FAERS Safety Report 26101718 (Version 1)
Quarter: 2025Q4

REPORT INFORMATION
  Report Type: Spontaneous
  Country: EU (occurrence: EU)
  Receive Date: 20251128
  Receipt Date: 20251128
  Transmission Date: 20260117
  Serious: Yes (Hospitalization, Other)
  Sender: PFIZER
  Company Number: EU-PFIZER INC-PV202500140287

PATIENT
  Age: 60 Year
  Sex: Female
  Weight: 105 kg

DRUGS (4)
  1. INFLIXIMAB [Suspect]
     Active Substance: INFLIXIMAB
     Indication: Colitis ulcerative
     Dosage: 500 MG ONCE EVERY TWO MONTHS (DOSE INTERVAL: 8 WEEKS)
     Route: 042
     Dates: start: 20240917
  2. INFLIXIMAB [Suspect]
     Active Substance: INFLIXIMAB
     Dosage: 500 MG ONCE EVERY TWO MONTHS (DOSE INTERVAL: 8 WEEKS)
     Route: 042
     Dates: start: 20241001
  3. INFLIXIMAB [Suspect]
     Active Substance: INFLIXIMAB
     Dosage: 500 MG ONCE EVERY TWO MONTHS (DOSE INTERVAL: 8 WEEKS)
     Route: 042
     Dates: start: 20241028
  4. INFLIXIMAB [Suspect]
     Active Substance: INFLIXIMAB
     Dosage: 500 MG ONCE EVERY TWO MONTHS (DOSE INTERVAL: 8 WEEKS)
     Route: 042
     Dates: start: 20241210, end: 20241210

REACTIONS (2)
  - Meningitis aseptic [Recovered/Resolved]
  - Pleocytosis [Unknown]

NARRATIVE: CASE EVENT DATE: 20250122
